FAERS Safety Report 7318461-7 (Version None)
Quarter: 2011Q1

REPORT INFORMATION
  Report Type: 
  Country: None (occurrence: None)
  Receive Date: 20110228
  Receipt Date: 20110223
  Transmission Date: 20110831
  Serious: No
  Sender: FDA-Public Use
  Company Number: US-PFIZER INC-2008004768

PATIENT
  Sex: Male
  Weight: 79.4 kg

DRUGS (6)
  1. CHANTIX [Suspect]
     Dosage: 0.5 MG, 1X/DAY
     Dates: start: 20110126, end: 20110101
  2. CHANTIX [Suspect]
     Dosage: 0.5 MG, 1X/DAY
     Route: 048
  3. LIPOFLAVONOID [Concomitant]
     Indication: TINNITUS
     Dosage: UNK
  4. CHANTIX [Suspect]
     Dosage: 0.5 MG, 1X/DAY
  5. CHANTIX [Suspect]
     Dosage: 1 MG, 2X/DAY
     Dates: start: 20110201
  6. DIAZEPAM [Concomitant]
     Dosage: 5 MG, 2X/DAY

REACTIONS (4)
  - FATIGUE [None]
  - NIGHTMARE [None]
  - ABNORMAL DREAMS [None]
  - INSOMNIA [None]
